FAERS Safety Report 6302516-X (Version None)
Quarter: 2009Q3

REPORT INFORMATION
  Report Type: 
  Country: None (occurrence: None)
  Receive Date: 20090810
  Receipt Date: 20090804
  Transmission Date: 20100115
  Serious: Yes (Disabling)
  Sender: FDA-Public Use
  Company Number: LB-AVENTIS-200914556EU

PATIENT
  Age: 70 Year
  Sex: Male

DRUGS (5)
  1. LOVENOX [Suspect]
     Route: 040
     Dates: start: 20090706, end: 20090706
  2. CLOPIDOGREL [Concomitant]
  3. CHOLESTEROL- AND TRIGLYCERIDE REDUCERS [Concomitant]
  4. BETA BLOCKING AGENTS [Concomitant]
  5. ACE INHIBITOR NOS [Concomitant]

REACTIONS (1)
  - CATHETER THROMBOSIS [None]
